FAERS Safety Report 12709151 (Version 1)
Quarter: 2016Q3

REPORT INFORMATION
  Report Type: Spontaneous
  Country: US (occurrence: None)
  Receive Date: 20160901
  Receipt Date: 20160901
  Transmission Date: 20161109
  Serious: Yes (Other)
  Sender: FDA-Public Use
  Company Number: None

PATIENT
  Age: 48 Year
  Sex: Female
  Weight: 49.9 kg

DRUGS (2)
  1. MULTI VITAMIN [Concomitant]
     Active Substance: VITAMINS
  2. SPF 30 BROAD SPECT WATER RESIS. ART NATURAL [Suspect]
     Active Substance: ZINC OXIDE
     Indication: PROPHYLAXIS AGAINST SOLAR RADIATION
     Route: 061
     Dates: start: 20160704

REACTIONS (2)
  - Sunburn [None]
  - Drug ineffective [None]

NARRATIVE: CASE EVENT DATE: 20160711
